FAERS Safety Report 12971103 (Version 4)
Quarter: 2018Q3

REPORT INFORMATION
  Report Type: Spontaneous
  Country: US (occurrence: US)
  Receive Date: 20161123
  Receipt Date: 20180809
  Transmission Date: 20181010
  Serious: No
  Sender: FDA-Public Use
  Company Number: US-JAZZ-2016-US-019007

PATIENT
  Sex: Female

DRUGS (27)
  1. LYRICA [Concomitant]
     Active Substance: PREGABALIN
  2. FENTANYL. [Concomitant]
     Active Substance: FENTANYL
  3. FLUORODEOXYGLUCOSE 18F [Concomitant]
  4. CARISOPRODOL. [Concomitant]
     Active Substance: CARISOPRODOL
  5. XYREM [Suspect]
     Active Substance: SODIUM OXYBATE
     Indication: CATAPLEXY
     Dosage: DOSE ADJUSTMENTS
     Route: 048
     Dates: start: 201605, end: 201606
  6. CYANOCOBALAMIN. [Concomitant]
     Active Substance: CYANOCOBALAMIN
  7. LEVOTHYROXINE. [Concomitant]
     Active Substance: LEVOTHYROXINE
  8. TEMAZEPAM. [Concomitant]
     Active Substance: TEMAZEPAM
  9. VITAMIN D3 [Concomitant]
     Active Substance: CHOLECALCIFEROL
  10. AMANTADINE. [Concomitant]
     Active Substance: AMANTADINE HYDROCHLORIDE
  11. HYDROCORTISONE. [Concomitant]
     Active Substance: HYDROCORTISONE
  12. SODIUM CHLORIDE. [Concomitant]
     Active Substance: SODIUM CHLORIDE
  13. OXYCONTIN [Concomitant]
     Active Substance: OXYCODONE HYDROCHLORIDE
  14. XANAX [Concomitant]
     Active Substance: ALPRAZOLAM
  15. FOLIC ACID. [Concomitant]
     Active Substance: FOLIC ACID
  16. SOMA [Concomitant]
     Active Substance: CARISOPRODOL
  17. MELATONIN [Concomitant]
     Active Substance: MELATONIN
  18. OXYCODONE HYDROCHLORIDE. [Concomitant]
     Active Substance: OXYCODONE HYDROCHLORIDE
  19. SEROQUEL [Concomitant]
     Active Substance: QUETIAPINE FUMARATE
  20. HALOPERIDOL DECAN [Concomitant]
  21. BIOTIN [Concomitant]
     Active Substance: BIOTIN
  22. XYREM [Suspect]
     Active Substance: SODIUM OXYBATE
     Indication: NARCOLEPSY
     Dosage: 2.25 G, BID
     Route: 048
     Dates: start: 201605, end: 201605
  23. XYREM [Suspect]
     Active Substance: SODIUM OXYBATE
     Dosage: 4.5 G, BID
     Route: 048
     Dates: start: 201606, end: 201711
  24. VITAMIN B12 [Concomitant]
     Active Substance: CYANOCOBALAMIN
  25. REMERON [Concomitant]
     Active Substance: MIRTAZAPINE
  26. BENZTROPINE. [Concomitant]
     Active Substance: BENZTROPINE
  27. NICOTINE. [Concomitant]
     Active Substance: NICOTINE

REACTIONS (2)
  - Pre-existing condition improved [Unknown]
  - Therapeutic response unexpected [Unknown]
